FAERS Safety Report 7625328-3 (Version None)
Quarter: 2011Q3

REPORT INFORMATION
  Report Type: 
  Country: None (occurrence: None)
  Receive Date: 20110721
  Receipt Date: 20110718
  Transmission Date: 20111222
  Serious: No
  Sender: FDA-Public Use
  Company Number: US-PFIZER INC-2011118466

PATIENT
  Sex: Female

DRUGS (1)
  1. CELEBREX [Suspect]
     Dosage: 200 MG, 1X/DAY
     Route: 048
     Dates: start: 20110409, end: 20110530

REACTIONS (6)
  - BURNING SENSATION [None]
  - PHOTOSENSITIVITY REACTION [None]
  - ERYTHEMA [None]
  - HYPERSENSITIVITY [None]
  - RASH [None]
  - SKIN IRRITATION [None]
